FAERS Safety Report 8414313-X (Version None)
Quarter: 2012Q2

REPORT INFORMATION
  Report Type: 
  Country: None (occurrence: None)
  Receive Date: 20120605
  Receipt Date: 20120522
  Transmission Date: 20120825
  Serious: Yes (Hospitalization)
  Sender: FDA-Public Use
  Company Number: JP-FRI-1000030944

PATIENT
  Age: 63 Year
  Sex: Male

DRUGS (3)
  1. LEXAPRO [Suspect]
     Indication: DEPRESSION
     Dosage: 10 MG
     Route: 048
     Dates: start: 20120319
  2. CLONAZEPAM [Concomitant]
     Route: 048
  3. NIZATIDINE [Concomitant]
     Route: 048

REACTIONS (1)
  - CONVULSION [None]
